FAERS Safety Report 11230255 (Version 1)
Quarter: 2015Q3

REPORT INFORMATION
  Report Type: Spontaneous
  Country: GB (occurrence: GB)
  Receive Date: 20150701
  Receipt Date: 20150701
  Transmission Date: 20151125
  Serious: Yes (Hospitalization)
  Sender: FDA-Public Use
  Company Number: GB-ACCORD-031769

PATIENT
  Age: 85 Year
  Sex: Female

DRUGS (11)
  1. TRAMADOL/TRAMADOL HYDROCHLORIDE [Suspect]
     Active Substance: TRAMADOL HYDROCHLORIDE
     Indication: RHEUMATOID ARTHRITIS
  2. SALBUTAMOL [Concomitant]
     Active Substance: ALBUTEROL
  3. SIMVASTATIN. [Concomitant]
     Active Substance: SIMVASTATIN
  4. ACIDEX [Concomitant]
     Active Substance: CALCIUM CARBONATE\SODIUM ALGINATE\SODIUM BICARBONATE
  5. BISOPROLOL [Concomitant]
     Active Substance: BISOPROLOL
  6. ACETYLSALICYLIC ACID [Concomitant]
     Active Substance: ASPIRIN
  7. CARBOMER [Concomitant]
     Active Substance: CARBOMER
  8. FOLIC ACID. [Concomitant]
     Active Substance: FOLIC ACID
  9. LACTULOSE. [Concomitant]
     Active Substance: LACTULOSE
  10. PARACETAMOL [Concomitant]
     Active Substance: ACETAMINOPHEN
  11. OLMESARTAN/OLMESARTAN MEDOXOMIL [Concomitant]

REACTIONS (4)
  - Fall [Unknown]
  - Off label use [Unknown]
  - Humerus fracture [None]
  - Dizziness [Recovered/Resolved]

NARRATIVE: CASE EVENT DATE: 20150602
